FAERS Safety Report 6979453-0 (Version None)
Quarter: 2010Q3

REPORT INFORMATION
  Report Type: 
  Country: None (occurrence: None)
  Receive Date: 20100913
  Receipt Date: 20100908
  Transmission Date: 20110219
  Serious: Yes (Hospitalization, Other)
  Sender: FDA-Public Use
  Company Number: US-ROXANE LABORATORIES, INC.-2010-RO-01192RO

PATIENT
  Age: 80 Year
  Sex: Female

DRUGS (17)
  1. LEVETIRACETAM [Suspect]
     Indication: GRAND MAL CONVULSION
     Dosage: 2000 MG
  2. LEVETIRACETAM [Suspect]
  3. AMLODIPINE [Suspect]
     Indication: HYPERTENSION
     Dosage: 10 MG
  4. SERTRALINE [Suspect]
     Indication: DEPRESSION
     Dosage: 50 MG
  5. SERTRALINE [Suspect]
     Dosage: 200 MG
  6. RISPERIDONE [Suspect]
     Dosage: 1 MG
  7. FUROSEMIDE [Suspect]
     Dosage: 20 MG
  8. PHENYTOIN [Suspect]
     Indication: GRAND MAL CONVULSION
     Dosage: 1000 MG
     Route: 042
  9. PHENYTOIN [Suspect]
     Dosage: 200 MG
     Route: 048
  10. TELMISARTAN [Suspect]
     Indication: HYPERTENSION
     Dosage: 80 MG
  11. LEVOTHYROXINE [Suspect]
     Indication: HYPOTHYROIDISM
     Dosage: 0.1 MG
     Route: 048
  12. LEVOTHYROXINE [Suspect]
     Dosage: 0.075 MG
  13. PREGABALIN [Suspect]
     Indication: GRAND MAL CONVULSION
     Dosage: 300 MG
  14. METOPROLOL TARTRATE [Suspect]
     Dosage: 50 MG
  15. WARFARIN SODIUM [Suspect]
     Dosage: 5 MG
  16. AMIODARONE HCL [Suspect]
     Dosage: 800 MG
     Route: 048
  17. AMIODARONE HCL [Suspect]
     Dosage: 200 MG

REACTIONS (4)
  - ATRIAL FIBRILLATION [None]
  - CARDIAC FAILURE CONGESTIVE [None]
  - DELIRIUM [None]
  - DRUG INEFFECTIVE [None]
